FAERS Safety Report 5638627-1 (Version None)
Quarter: 2008Q1

REPORT INFORMATION
  Report Type: 
  Country: None (occurrence: None)
  Receive Date: 20080226
  Receipt Date: 20080214
  Transmission Date: 20080703
  Serious: Yes (Hospitalization, Other)
  Sender: FDA-Public Use
  Company Number: US-ELI_LILLY_AND_COMPANY-US200802003424

PATIENT
  Sex: Female

DRUGS (6)
  1. ZYPREXA [Suspect]
  2. LAMICTAL [Concomitant]
     Indication: BIPOLAR DISORDER
     Dosage: 50 MG, UNK
     Route: 048
     Dates: start: 20051101, end: 20061206
  3. PAXIL [Concomitant]
     Indication: DEPRESSION
     Dosage: 20 MG, UNK
     Dates: start: 19970101, end: 20010101
  4. PAXIL [Concomitant]
     Dates: start: 20060101
  5. PAXIL [Concomitant]
     Dosage: 20 MG, DAILY (1/D)
     Dates: start: 20060101
  6. LYRICA [Concomitant]

REACTIONS (12)
  - AGITATION [None]
  - AMBLYOPIA [None]
  - BLOOD POTASSIUM DECREASED [None]
  - CONVULSION [None]
  - DEHYDRATION [None]
  - ELECTROCARDIOGRAM ABNORMAL [None]
  - LOSS OF CONSCIOUSNESS [None]
  - OEDEMA PERIPHERAL [None]
  - OVERDOSE [None]
  - PARALYSIS [None]
  - VERTIGO [None]
  - VOMITING [None]
